FAERS Safety Report 8966669 (Version 1)
Quarter: 2012Q4

REPORT INFORMATION
  Report Type: 
  Country: US (occurrence: US)
  Receive Date: 20121217
  Receipt Date: 20121217
  Transmission Date: 20130627
  Serious: Yes (Hospitalization)
  Sender: FDA-Public Use
  Company Number: US-BAYER-2012-112812

PATIENT
  Age: 67 Year
  Sex: Male
  Weight: 102.97 kg

DRUGS (6)
  1. XARELTO [Suspect]
     Indication: CEREBROVASCULAR ACCIDENT PROPHYLAXIS
     Dosage: 20 mg, QD
     Route: 048
     Dates: start: 20120913
  2. XARELTO [Suspect]
     Indication: ATRIAL FIBRILLATION
  3. ACETYLSALICYLIC ACID({=100 MG) [Suspect]
     Indication: ATRIAL FIBRILLATION
     Dosage: 81 mg, UNK
  4. PRAVASTATIN [Concomitant]
     Indication: HYPERLIPIDEMIA
  5. CARDIZEM [Concomitant]
     Indication: ATRIAL FIBRILLATION
     Dosage: 120 mg, QD
  6. LOPRESSOR [Concomitant]
     Dosage: 100 mg, BID

REACTIONS (1)
  - Cerebrovascular accident [Recovering/Resolving]
